FAERS Safety Report 8250354-3 (Version None)
Quarter: 2012Q1

REPORT INFORMATION
  Report Type: 
  Country: None (occurrence: None)
  Receive Date: 20120319
  Receipt Date: 20101004
  Transmission Date: 20120608
  Serious: Yes (Other)
  Sender: FDA-Public Use
  Company Number: PHHY2010US66407

PATIENT
  Age: 75 Year
  Sex: Female

DRUGS (6)
  1. DILANTIN [Concomitant]
  2. IRON (IRON) TABLET [Concomitant]
  3. VITAMINS (NO INGREDIENTS/SUBSTANCES) [Concomitant]
  4. PHENOBARBITAL TAB [Concomitant]
  5. TEKTURNA HCT [Suspect]
     Dosage: 150 /12.5 MG,
  6. LIPITOR [Concomitant]

REACTIONS (3)
  - BLOOD PRESSURE DECREASED [None]
  - DIZZINESS [None]
  - BLOOD PRESSURE INADEQUATELY CONTROLLED [None]
